FAERS Safety Report 7406582-X (Version None)
Quarter: 2011Q2

REPORT INFORMATION
  Report Type: 
  Country: None (occurrence: None)
  Receive Date: 20110406
  Receipt Date: 20110406
  Transmission Date: 20111010
  Serious: Yes (Other)
  Sender: FDA-Public Use
  Company Number: None

PATIENT
  Age: 36 Year
  Sex: Male
  Weight: 106.5953 kg

DRUGS (1)
  1. ABILIFY [Suspect]
     Indication: DEPRESSION
     Dosage: 2.5MG DAILY PO
     Route: 048
     Dates: start: 20090924, end: 20100821

REACTIONS (2)
  - GAMBLING [None]
  - WEIGHT INCREASED [None]
